FAERS Safety Report 24242088 (Version 1)
Quarter: 2024Q3

REPORT INFORMATION
  Report Type: Other
  Country: CN (occurrence: CN)
  Receive Date: 20240823
  Receipt Date: 20240823
  Transmission Date: 20241016
  Serious: Yes (Other)
  Sender: JIANGSU HENGRUI MEDICINE
  Company Number: CN-Jiangsu Hengrui Medicine Co., Ltd.-2160774

PATIENT
  Age: 57 Year
  Sex: Male
  Weight: 57 kg

DRUGS (1)
  1. OXALIPLATIN [Suspect]
     Active Substance: OXALIPLATIN
     Indication: Adenocarcinoma gastric
     Route: 041
     Dates: start: 20240710, end: 20240710

REACTIONS (2)
  - Chills [Recovering/Resolving]
  - Hyperpyrexia [Recovering/Resolving]

NARRATIVE: CASE EVENT DATE: 20240710
